FAERS Safety Report 9959474 (Version 1)
Quarter: 2014Q1

REPORT INFORMATION
  Report Type: Report from Study
  Country: US (occurrence: US)
  Receive Date: 20140305
  Receipt Date: 20140305
  Transmission Date: 20141002
  Serious: No
  Sender: FDA-Public Use
  Company Number: US-ABBVIE-13P-163-1106801-00

PATIENT
  Age: 55 Year
  Sex: Female

DRUGS (13)
  1. HUMIRA [Suspect]
     Indication: RHEUMATOID ARTHRITIS
     Route: 058
     Dates: start: 20130409
  2. ATENOLOL [Concomitant]
     Indication: BLOOD PRESSURE
     Dosage: 100MG DAILY
  3. LIPITOR [Concomitant]
     Indication: BLOOD CHOLESTEROL INCREASED
     Dosage: 40MG DAILY
  4. METFORMIN [Concomitant]
     Indication: DIABETES MELLITUS
  5. CLONAZEPAM [Concomitant]
     Indication: MUSCLE SPASMS
  6. CLONAZEPAM [Concomitant]
     Indication: SURGERY
  7. CLONAZEPAM [Concomitant]
     Indication: JOINT INJURY
  8. BENAZEPRIL [Concomitant]
     Indication: HYPERTENSION
     Dosage: 40MG DAILY
  9. CARVEDILOL [Concomitant]
     Indication: CARDIAC DISORDER
  10. FISH OIL [Concomitant]
     Indication: PRODUCT USED FOR UNKNOWN INDICATION
  11. VITAMIN C [Concomitant]
     Indication: PRODUCT USED FOR UNKNOWN INDICATION
  12. CALCIUM [Concomitant]
     Indication: PRODUCT USED FOR UNKNOWN INDICATION
  13. IRON [Concomitant]
     Indication: PRODUCT USED FOR UNKNOWN INDICATION

REACTIONS (2)
  - Joint swelling [Recovered/Resolved]
  - Arthralgia [Recovered/Resolved]
